FAERS Safety Report 7481023-5 (Version None)
Quarter: 2011Q2

REPORT INFORMATION
  Report Type: 
  Country: None (occurrence: None)
  Receive Date: 20110516
  Receipt Date: 20110512
  Transmission Date: 20111010
  Serious: Yes (Other)
  Sender: FDA-Public Use
  Company Number: US-ABBOTT-11P-163-0718648-00

PATIENT
  Sex: Female
  Weight: 130.75 kg

DRUGS (10)
  1. MULTI-VITAMIN [Concomitant]
     Indication: VITAMIN SUPPLEMENTATION
  2. FLAX OIL [Concomitant]
     Indication: SUPPLEMENTATION THERAPY
  3. HUMIRA [Suspect]
     Indication: RHEUMATOID ARTHRITIS
     Dates: start: 20080101
  4. VITAMIN B-12 [Concomitant]
     Indication: VITAMIN SUPPLEMENTATION
  5. FISH OIL [Concomitant]
     Indication: SUPPLEMENTATION THERAPY
  6. SIMVASTATIN [Concomitant]
     Indication: BLOOD CHOLESTEROL INCREASED
  7. IMURAN [Concomitant]
     Indication: RHEUMATOID ARTHRITIS
     Route: 048
  8. FERROUS SULFATE TAB [Concomitant]
     Indication: MINERAL SUPPLEMENTATION
  9. ALBUTEROL [Concomitant]
     Indication: ASTHMA
  10. LEVOXYL [Concomitant]
     Indication: HYPOTHYROIDISM

REACTIONS (9)
  - CYST [None]
  - TENDON RUPTURE [None]
  - LOWER LIMB FRACTURE [None]
  - ARTICULAR CALCIFICATION [None]
  - JOINT ADHESION [None]
  - BONE FRAGMENTATION [None]
  - JOINT SWELLING [None]
  - LIGAMENT RUPTURE [None]
  - BRONCHITIS [None]
